FAERS Safety Report 5959950-7 (Version None)
Quarter: 2008Q4

REPORT INFORMATION
  Report Type: 
  Country: None (occurrence: None)
  Receive Date: 20081119
  Receipt Date: 20081119
  Transmission Date: 20090506
  Serious: Yes (Hospitalization)
  Sender: FDA-Public Use
  Company Number: None

PATIENT
  Age: 45 Year
  Sex: Male

DRUGS (4)
  1. IBUPROFEN TABLETS [Suspect]
     Indication: PAIN
     Dosage: 800 MG PO TID
     Route: 048
     Dates: start: 20080701, end: 20080901
  2. FLUOROURACIL [Concomitant]
  3. LASIX [Concomitant]
  4. ASPIRIN [Concomitant]

REACTIONS (2)
  - GASTRITIS [None]
  - OCCULT BLOOD POSITIVE [None]
